FAERS Safety Report 13877933 (Version 2)
Quarter: 2017Q3

REPORT INFORMATION
  Report Type: Report from Study
  Country: JP (occurrence: JP)
  Receive Date: 20170817
  Receipt Date: 20170831
  Transmission Date: 20171127
  Serious: Yes (Other)
  Sender: FDA-Public Use
  Company Number: JP-JNJFOC-20170610127

PATIENT
  Age: 43 Year
  Sex: Male
  Weight: 81 kg

DRUGS (3)
  1. YONDELIS [Suspect]
     Active Substance: TRABECTEDIN
     Indication: DERMATOFIBROSARCOMA PROTUBERANS METASTATIC
     Dosage: 24-HOUR INFUSION
     Route: 042
     Dates: start: 20160427
  2. YONDELIS [Suspect]
     Active Substance: TRABECTEDIN
     Indication: DERMATOFIBROSARCOMA PROTUBERANS METASTATIC
     Dosage: 24-HOUR INFUSION
     Route: 042
     Dates: start: 20160520
  3. DEXAMETHASONE. [Concomitant]
     Active Substance: DEXAMETHASONE
     Route: 065
     Dates: start: 20160427

REACTIONS (2)
  - Bone marrow failure [Recovered/Resolved]
  - Hepatic enzyme abnormal [Recovered/Resolved]

NARRATIVE: CASE EVENT DATE: 20160502
